FAERS Safety Report 7889443-1 (Version None)
Quarter: 2011Q4

REPORT INFORMATION
  Report Type: 
  Country: None (occurrence: None)
  Receive Date: 20111103
  Receipt Date: 20111028
  Transmission Date: 20120403
  Serious: Yes (Other)
  Sender: FDA-Public Use
  Company Number: IT-SANOFI-AVENTIS-2011SA070990

PATIENT
  Age: 75 Year
  Sex: Male

DRUGS (5)
  1. RAMIPRIL [Suspect]
     Route: 048
     Dates: start: 20080101
  2. BISOPROLOL FUMARATE [Suspect]
     Route: 048
     Dates: start: 20080101
  3. GLUCOPHAGE [Concomitant]
     Route: 065
  4. ASPIRIN [Concomitant]
     Route: 048
  5. FUROSEMIDE [Suspect]
     Route: 048
     Dates: start: 20110709, end: 20110711

REACTIONS (1)
  - SYNCOPE [None]
